FAERS Safety Report 4947510-6 (Version None)
Quarter: 2006Q1

REPORT INFORMATION
  Report Type: 
  Country: None (occurrence: None)
  Receive Date: 20060314
  Receipt Date: 20060227
  Transmission Date: 20060701
  Serious: Yes (Life-Threatening)
  Sender: FDA-Public Use
  Company Number: 222888

PATIENT
  Age: 66 Year
  Sex: Female
  Weight: 60 kg

DRUGS (5)
  1. AVASTIN [Suspect]
     Indication: COLON CANCER
     Dosage: 300 MG, QOW, INTRAVENOUS
     Route: 042
     Dates: start: 20051130
  2. OXALIPLATIN (OXALIPLATIN) [Suspect]
     Indication: COLON CANCER
     Dosage: 134 MG, INTRAVENOUS
     Route: 042
     Dates: start: 20051130
  3. FLUOROURACIL [Suspect]
     Indication: COLON CANCER
     Dosage: 630 MG, IV BOLUS; SEE IMAGE
     Route: 040
     Dates: start: 20051130
  4. LEUCOVORIN CALCIUM [Suspect]
     Indication: COLON CANCER
     Dosage: 150 MG, INTRAVENOUS
     Route: 042
     Dates: start: 20051130
  5. ENALAPRIL MALEATE [Concomitant]

REACTIONS (1)
  - NEUTROPENIA [None]
